FAERS Safety Report 6710228-3 (Version None)
Quarter: 2010Q2

REPORT INFORMATION
  Report Type: 
  Country: None (occurrence: None)
  Receive Date: 20100430
  Receipt Date: 20100413
  Transmission Date: 20101027
  Serious: Yes (Hospitalization)
  Sender: FDA-Public Use
  Company Number: 7001159

PATIENT
  Age: 89 Year
  Sex: Female

DRUGS (10)
  1. LEVOTHYROXINE SODIUM [Suspect]
     Indication: GOITRE
     Dosage: 1 DF (1 DF, 1 IN 1 D), ORAL
     Route: 048
  2. CELIPROLOL (CELIPROLOL) (CELIPROLOL) [Suspect]
     Indication: MYOCARDIAL ISCHAEMIA
     Dosage: 200 MG(200 MG, 1 IN 1 D), ORAL
     Route: 048
  3. ZOPICLONE (ZOPICLONE) (ZOPICLONE) [Suspect]
     Indication: DRUG USE FOR UNKNOWN INDICATION
     Dosage: 1 DF (1 DF, AT BEDTIME), ORAL
     Route: 048
  4. RENNIE (CALCIUM CARBONATE) (TABLET) (CALCIUM CARBONATE) [Suspect]
     Indication: DRUG USE FOR UNKNOWN INDICATION
     Dosage: 3 DF (1 DF, 3 IN 1 D), ORAL
     Route: 048
     Dates: start: 20100225, end: 20100225
  5. COVERSYL (PERINDOPRIL) (4 MG, TABLET) (PERINDOPRIL) [Suspect]
     Indication: HYPERTENSION
     Dosage: 1 DF (1 DF, 1 IN 1 D), ORAL
     Route: 048
     Dates: end: 20100226
  6. FLUDEX (INDAPAMIDE) (1.5 MG, COATED TABLET) (INDAPAMIDE) [Suspect]
     Indication: HYPERTENSION
     Dosage: 1 DF (1 DF, 1 IN 1 D), ORAL
     Route: 048
  7. TAHOR (ATORVASTATIN CALCIUM) (40 MG, COATED TABLET) (ATORVASTATIN CALC [Suspect]
     Indication: DRUG USE FOR UNKNOWN INDICATION
     Dosage: 1 DF (1 DF, 1 IN 1 D), ORAL
     Route: 048
  8. PLAVIX [Suspect]
     Indication: MYOCARDIAL ISCHAEMIA
     Dosage: 1 DF (1 DF, 1 IN 1 D), ORAL
     Route: 048
  9. ATARAX [Suspect]
     Indication: DRUG USE FOR UNKNOWN INDICATION
     Dosage: 1 DF (1 DF, AT BEDTIME), ORAL
     Route: 048
  10. NOVONORM (REPAGLINIDE) (REPAGLINIDE) [Suspect]
     Indication: TYPE 2 DIABETES MELLITUS
     Dosage: 2 MG IN THE MORNING AND IN THE EVENING, 1 MG AT MIDDAY, ORAL
     Route: 048

REACTIONS (4)
  - ANGIOEDEMA [None]
  - DYSPHAGIA [None]
  - LOCALISED OEDEMA [None]
  - TONGUE OEDEMA [None]
